FAERS Safety Report 11100297 (Version 1)
Quarter: 2015Q2

REPORT INFORMATION
  Report Type: Spontaneous
  Country: US (occurrence: None)
  Receive Date: 20150507
  Receipt Date: 20150507
  Transmission Date: 20150821
  Serious: No
  Sender: FDA-Public Use
  Company Number: None

PATIENT
  Age: 28 Year
  Sex: Male
  Weight: 71.22 kg

DRUGS (2)
  1. MELATONIN [Concomitant]
     Active Substance: MELATONIN
  2. DULOXETINE [Suspect]
     Active Substance: DULOXETINE
     Indication: DEPRESSION
     Dosage: 1
     Route: 048
     Dates: start: 20130310, end: 20150502

REACTIONS (4)
  - Irritability [None]
  - Mood altered [None]
  - Nausea [None]
  - Emotional disorder [None]

NARRATIVE: CASE EVENT DATE: 20150502
